FAERS Safety Report 15995615 (Version 3)
Quarter: 2019Q2

REPORT INFORMATION
  Report Type: Spontaneous
  Country: RO (occurrence: RO)
  Receive Date: 20190222
  Receipt Date: 20190417
  Transmission Date: 20190711
  Serious: Yes (Death, Other)
  Sender: FDA-Public Use
  Company Number: RO-ELI_LILLY_AND_COMPANY-RO201902010145

PATIENT
  Age: 55 Year
  Sex: Male

DRUGS (2)
  1. PLATINUM [Concomitant]
     Active Substance: PLATINUM
     Indication: NON-SMALL CELL LUNG CANCER STAGE IIIB
     Dosage: UNK UNK, UNKNOWN
     Route: 065
  2. ALIMTA [Suspect]
     Active Substance: PEMETREXED DISODIUM
     Indication: NON-SMALL CELL LUNG CANCER STAGE IIIB
     Dosage: UNK UNK, CYCLICAL
     Route: 065

REACTIONS (5)
  - Blood creatinine increased [Unknown]
  - Neutropenia [Fatal]
  - Renal failure [Fatal]
  - Cardiac failure [Fatal]
  - Bone marrow failure [Unknown]
